FAERS Safety Report 8345410-5 (Version None)
Quarter: 2012Q2

REPORT INFORMATION
  Report Type: 
  Country: None (occurrence: None)
  Receive Date: 20120508
  Receipt Date: 20120427
  Transmission Date: 20120825
  Serious: Yes (Hospitalization)
  Sender: FDA-Public Use
  Company Number: US-CELGENEUS-163-AB007-12031013

PATIENT
  Sex: Male
  Weight: 97 kg

DRUGS (63)
  1. GEMCITABINE [Suspect]
     Dosage: 800 MILLIGRAM/SQ. METER
     Route: 041
     Dates: start: 20120306
  2. SODIUM CHLORIDE [Concomitant]
     Indication: PROPHYLAXIS AGAINST DEHYDRATION
     Dosage: 1 LITERS
     Route: 041
     Dates: start: 20120308, end: 20120308
  3. HYDRALAZINE HCL [Concomitant]
     Indication: BLOOD PRESSURE
     Dosage: 10 MILLIGRAM
     Route: 065
     Dates: start: 20120308, end: 20120310
  4. TYLENOL (CAPLET) [Concomitant]
     Route: 041
     Dates: start: 20120319, end: 20120319
  5. EMEND [Concomitant]
     Indication: PROPHYLAXIS
     Route: 041
     Dates: start: 20111107, end: 20111109
  6. LASIX [Concomitant]
     Route: 041
     Dates: start: 20120215, end: 20120215
  7. MORPHINE [Concomitant]
     Indication: PAIN
     Dosage: 2-4 MG
     Route: 048
     Dates: start: 20120308, end: 20120310
  8. SKELAXIN [Concomitant]
  9. ENSURE [Concomitant]
     Indication: SUPPLEMENTATION THERAPY
     Route: 048
     Dates: start: 20111003
  10. DEMEROL [Concomitant]
     Indication: PAIN
     Route: 048
     Dates: start: 20120328
  11. LASIX [Concomitant]
     Route: 048
     Dates: start: 20111227
  12. PRAVASTATIN [Concomitant]
     Dosage: 80 MILLIGRAM
     Route: 048
     Dates: start: 20090301
  13. BYSTOLIC [Concomitant]
     Indication: HYPERTENSION
     Dosage: 10 MILLIGRAM
     Route: 048
     Dates: start: 20090501
  14. ZOFRAN [Concomitant]
     Route: 041
  15. ALOXI [Concomitant]
     Indication: CHEMOTHERAPY
     Route: 041
     Dates: start: 20111011
  16. TYLENOL (CAPLET) [Concomitant]
     Indication: PREMEDICATION
     Route: 048
     Dates: start: 20120215, end: 20120215
  17. POTASSIUM CHLORIDE [Concomitant]
     Indication: SUPPLEMENTATION THERAPY
     Route: 048
     Dates: start: 20111216
  18. MAGNESIUM OXIDE [Concomitant]
     Route: 041
     Dates: start: 20111019, end: 20111027
  19. FUROSEMIDE [Concomitant]
     Dosage: 40 MILLIGRAM
     Route: 065
  20. LASIX [Concomitant]
     Indication: PROPHYLAXIS
     Route: 048
     Dates: start: 20120124
  21. NEBIVOLOL [Concomitant]
     Indication: BLOOD PRESSURE
     Dosage: 10 MILLIGRAM
     Route: 048
     Dates: start: 20120308, end: 20120310
  22. JALYN [Concomitant]
     Indication: URINE FLOW DECREASED
     Dosage: 0.5/0.4 MG
     Route: 048
     Dates: start: 20100701
  23. HYDROCODONE BITARTRATE [Concomitant]
     Indication: ABDOMINAL PAIN
  24. MAGNESIUM OXIDE [Concomitant]
     Dosage: 800 MILLIGRAM
     Route: 041
     Dates: start: 20120316
  25. KLOR-CON [Concomitant]
     Route: 065
  26. PERCOCET [Concomitant]
     Dosage: 5/325
     Route: 065
  27. RED BLOOD CELLS [Concomitant]
     Dosage: 2 IU (INTERNATIONAL UNIT)
     Route: 041
     Dates: start: 20111227, end: 20111227
  28. D5 1/2 NS [Concomitant]
     Indication: PROPHYLAXIS AGAINST DEHYDRATION
     Dosage: 100 MILLILITER
     Route: 041
     Dates: end: 20120310
  29. VITAMIN D [Concomitant]
     Indication: VITAMIN SUPPLEMENTATION
     Dosage: 1 TABLET
     Route: 048
     Dates: start: 20100501
  30. SKELAXIN [Concomitant]
     Indication: MUSCLE STRAIN
  31. ARANESP [Concomitant]
     Route: 058
     Dates: start: 20111115
  32. HYDROCHLOROTHIAZIDE [Concomitant]
     Indication: HYPERTENSION
     Dosage: 25 MILLIGRAM
     Route: 048
     Dates: start: 20090501
  33. VITAMIN C [Concomitant]
     Indication: VITAMIN SUPPLEMENTATION
     Dosage: 1 TABLET
     Route: 048
     Dates: start: 20000601
  34. COMPAZINE [Concomitant]
     Indication: PROPHYLAXIS
     Route: 048
     Dates: start: 20111011
  35. GLIPIZIDE [Concomitant]
     Dosage: 10 MILLIGRAM
     Route: 048
     Dates: start: 20111003
  36. MAGNESIUM OXIDE [Concomitant]
     Route: 048
     Dates: start: 20120214
  37. RED BLOOD CELLS [Concomitant]
     Indication: EPISTAXIS
     Dosage: 2 IU (INTERNATIONAL UNIT)
     Route: 041
     Dates: start: 20111207, end: 20111208
  38. BENADRYL [Concomitant]
     Indication: PREMEDICATION
     Route: 041
     Dates: start: 20120215, end: 20120215
  39. MAGNESIUM [Concomitant]
     Route: 041
     Dates: start: 20120316
  40. ABRAXANE [Suspect]
     Dosage: 125 MILLIGRAM/SQ. METER
     Route: 041
     Dates: start: 20111011
  41. ABRAXANE [Suspect]
     Dosage: 100 MILLIGRAM/SQ. METER
     Route: 041
     Dates: start: 20120306
  42. GEMCITABINE [Suspect]
     Dosage: 1000 MILLIGRAM/SQ. METER
     Route: 041
     Dates: start: 20111011
  43. ZOLPIDEM [Concomitant]
     Indication: INSOMNIA
     Dosage: 10 MILLIGRAM
     Route: 048
     Dates: start: 20110701
  44. SKELAXIN [Concomitant]
     Indication: MUSCLE SPASMS
     Dosage: 800 MILLIGRAM
     Route: 048
     Dates: start: 20110701
  45. EMLA [Concomitant]
     Indication: PROPHYLAXIS
     Route: 061
     Dates: start: 20111011
  46. ZOFRAN [Concomitant]
     Indication: PROPHYLAXIS
     Route: 048
     Dates: start: 20111011
  47. TYLENOL (CAPLET) [Concomitant]
     Route: 048
     Dates: start: 20111011
  48. MAGNESIUM OXIDE [Concomitant]
     Dosage: 800 MILLIGRAM
     Route: 041
     Dates: start: 20120124, end: 20120213
  49. RED BLOOD CELLS [Concomitant]
     Dosage: 2 IU (INTERNATIONAL UNIT)
     Route: 041
     Dates: start: 20120310, end: 20120310
  50. LASIX [Concomitant]
     Route: 041
     Dates: start: 20120319, end: 20120319
  51. ZITHROMAX [Concomitant]
  52. BENADRYL [Concomitant]
     Route: 041
     Dates: start: 20120319, end: 20120319
  53. PREDNISONE TAB [Concomitant]
     Route: 048
     Dates: start: 20111227
  54. PREDNISONE TAB [Concomitant]
     Dosage: 30 MILLIGRAM
     Route: 048
     Dates: start: 20120221
  55. MORPHINE [Concomitant]
     Route: 041
  56. PAIN MEDICATION [Concomitant]
     Indication: PAIN
     Route: 041
  57. ACIPHEX [Concomitant]
     Dosage: 20 MILLIGRAM
     Route: 048
     Dates: start: 20090501
  58. MULTI-VITAMINS [Concomitant]
     Indication: VITAMIN SUPPLEMENTATION
     Dosage: 1 TABLET
     Route: 048
     Dates: start: 20000601
  59. HYDROCODONE BITARTRATE [Concomitant]
     Indication: PAIN
     Route: 048
     Dates: start: 20110701
  60. DECADRON [Concomitant]
     Route: 041
     Dates: start: 20120103
  61. RED BLOOD CELLS [Concomitant]
     Dosage: 2 IU (INTERNATIONAL UNIT)
     Route: 041
     Dates: start: 20120215, end: 20120215
  62. RED BLOOD CELLS [Concomitant]
     Dosage: 1 UNIT
     Route: 041
     Dates: start: 20120309, end: 20120309
  63. ZITHROMAX [Concomitant]
     Indication: SINUS CONGESTION
     Route: 048
     Dates: start: 20120131, end: 20120205

REACTIONS (3)
  - EPISTAXIS [None]
  - ILEUS [None]
  - HAEMORRHAGIC ANAEMIA [None]
